FAERS Safety Report 17648085 (Version 1)
Quarter: 2020Q2

REPORT INFORMATION
  Report Type: Report from Study
  Country: US (occurrence: US)
  Receive Date: 20200408
  Receipt Date: 20200408
  Transmission Date: 20200713
  Serious: Yes (Death, Other)
  Sender: FDA-Public Use
  Company Number: US-GLAXOSMITHKLINE-US2020GSK059755

PATIENT
  Age: 71 Year
  Sex: Female
  Weight: 94.6 kg

DRUGS (12)
  1. CARBOPLATIN. [Suspect]
     Active Substance: CARBOPLATIN
     Dosage: 737 MG
     Route: 042
     Dates: start: 20200401, end: 20200401
  2. NIRAPARIB [Suspect]
     Active Substance: NIRAPARIB
     Indication: OVARIAN CANCER
     Dosage: UNK
  3. CARBOPLATIN. [Suspect]
     Active Substance: CARBOPLATIN
     Indication: OVARIAN CANCER
     Dosage: 830 MG
     Route: 042
     Dates: start: 20200311, end: 20200311
  4. PACLITAXEL. [Suspect]
     Active Substance: PACLITAXEL
     Indication: OVARIAN CANCER
     Dosage: 350 MG
     Route: 042
     Dates: start: 20200311, end: 20200311
  5. ATORVASTATIN [Concomitant]
     Active Substance: ATORVASTATIN
     Indication: HYPERCHOLESTEROLAEMIA
     Dosage: 40 MG
     Dates: start: 2010
  6. BEVACIZUMAB. [Suspect]
     Active Substance: BEVACIZUMAB
     Indication: OVARIAN CANCER
     Dosage: 1470 MG
     Route: 042
     Dates: start: 20200311, end: 20200311
  7. FLUTICASONE + SALMETEROL [Concomitant]
     Active Substance: FLUTICASONE FUROATE\SALMETEROL XINAFOATE
     Indication: CHRONIC OBSTRUCTIVE PULMONARY DISEASE
     Dosage: 250 / 50 MG
     Dates: start: 2015
  8. ALLOPURINOL. [Concomitant]
     Active Substance: ALLOPURINOL
     Dosage: 100 MG
     Dates: start: 2015
  9. METFORMIN [Concomitant]
     Active Substance: METFORMIN HYDROCHLORIDE
     Indication: DIABETES MELLITUS
     Dosage: 50 MG
     Dates: start: 2014
  10. DOSTARLIMAB [Suspect]
     Active Substance: DOSTARLIMAB
     Indication: OVARIAN CANCER
     Dosage: 500 MG
     Route: 042
     Dates: start: 20200401, end: 20200401
  11. PACLITAXEL. [Suspect]
     Active Substance: PACLITAXEL
     Dosage: 340 MG
     Route: 042
     Dates: start: 20200401, end: 20200401
  12. BEVACIZUMAB. [Suspect]
     Active Substance: BEVACIZUMAB
     Dosage: 1400 MG
     Route: 042
     Dates: start: 20200401, end: 20200401

REACTIONS (1)
  - Death [Fatal]

NARRATIVE: CASE EVENT DATE: 20200403
